FAERS Safety Report 6119665-1 (Version None)
Quarter: 2009Q1

REPORT INFORMATION
  Report Type: 
  Country: None (occurrence: None)
  Receive Date: 20090311
  Receipt Date: 20090226
  Transmission Date: 20090719
  Serious: Yes (Hospitalization)
  Sender: FDA-Public Use
  Company Number: PAR_02865_2009

PATIENT
  Age: 74 Year
  Sex: Male
  Weight: 70 kg

DRUGS (11)
  1. IBUPROFEN [Suspect]
     Indication: PAIN
     Dosage: (400 MG QD ORAL)
     Route: 048
     Dates: start: 20080901, end: 20081029
  2. FALITHROM (FALITHROM - PHENPROCOUMON) 1.5 MG (NOT SPECIFIED) [Suspect]
     Indication: AORTIC VALVE REPLACEMENT
     Dosage: (1.5 MG QD ORAL)
     Route: 048
     Dates: start: 20010101, end: 20081031
  3. FALITHROM (FALITHROM - PHENPROCOUMON) 1.5 MG (NOT SPECIFIED) [Suspect]
     Indication: AORTIC VALVE REPLACEMENT
     Dosage: (1.5 MG QD ORAL)
     Route: 048
     Dates: start: 20081103
  4. ALLOPURINOL [Concomitant]
  5. AMITRIPTYLINE [Concomitant]
  6. DIGITOXIN TAB [Concomitant]
  7. DIOVANE [Concomitant]
  8. SIMVASTATIN [Concomitant]
  9. METOPROLOL SUCCINATE [Concomitant]
  10. OMEP [Concomitant]
  11. CLEXANE [Concomitant]

REACTIONS (7)
  - DIVERTICULUM INTESTINAL HAEMORRHAGIC [None]
  - DRUG INTERACTION [None]
  - GASTROINTESTINAL HYPERMOTILITY [None]
  - HAEMATOCRIT DECREASED [None]
  - HAEMOGLOBIN DECREASED [None]
  - LOWER GASTROINTESTINAL HAEMORRHAGE [None]
  - RED BLOOD CELL COUNT DECREASED [None]
